FAERS Safety Report 7057871-2 (Version None)
Quarter: 2010Q4

REPORT INFORMATION
  Report Type: 
  Country: None (occurrence: None)
  Receive Date: 20101022
  Receipt Date: 20101008
  Transmission Date: 20110411
  Serious: No
  Sender: FDA-Public Use
  Company Number: US-ROXANE LABORATORIES, INC.-2010-RO-01180RO

PATIENT
  Sex: Female

DRUGS (7)
  1. MORPHINE [Suspect]
     Indication: HOSPICE CARE
     Route: 060
     Dates: start: 20100826
  2. LORAZEPAM [Concomitant]
  3. SENNA [Concomitant]
  4. ACETAMINOPHEN [Concomitant]
  5. NAMENDA [Concomitant]
  6. VITAMIN D [Concomitant]
  7. VITAMIN B-12 [Concomitant]

REACTIONS (1)
  - DRUG EFFECT DECREASED [None]
